FAERS Safety Report 7132081-9 (Version None)
Quarter: 2010Q4

REPORT INFORMATION
  Report Type: 
  Country: None (occurrence: None)
  Receive Date: 20101202
  Receipt Date: 20101129
  Transmission Date: 20110411
  Serious: Yes (Hospitalization, Other)
  Sender: FDA-Public Use
  Company Number: PHHY2010US73798

PATIENT
  Sex: Male

DRUGS (14)
  1. TOBI [Suspect]
     Indication: CYSTIC FIBROSIS
     Dosage: 300 MG, BID
  2. VANCOMYCIN [Concomitant]
     Dosage: 2.5 G, QD
     Route: 042
  3. CIPROFLOXACIN [Concomitant]
     Dosage: 1 G, BID
  4. ZITHROMAX [Concomitant]
     Dosage: 250 MG, QD
  5. MULTI-VITAMIN [Concomitant]
     Dosage: 1 CAPSULE 1 TIME DAILY
  6. XOPENEX [Concomitant]
     Dosage: 2 PUFFS PRN
  7. SINGULAIR [Concomitant]
     Dosage: 10 MG DAILY
  8. RANITIDINE [Concomitant]
     Dosage: 150 MG, QD
  9. MOTRIN [Concomitant]
     Dosage: 800 MG, BID
  10. OXYCONTIN [Concomitant]
     Dosage: 2 TABLETS EVERY 4 HRS PRN
  11. PULMOZYME [Concomitant]
     Dosage: 2.5 MG, BID
  12. RIFAMPIN [Concomitant]
     Dosage: 600 MG, BID
  13. LINEZOLID [Concomitant]
     Dosage: 600 MG, BID
  14. AZTREONAM [Concomitant]
     Dosage: 10 GM DAILY
     Route: 042

REACTIONS (11)
  - BRONCHIAL IRRITATION [None]
  - BRONCHIECTASIS [None]
  - COUGH [None]
  - DRY THROAT [None]
  - DYSPNOEA [None]
  - DYSPNOEA EXERTIONAL [None]
  - LUNG DISORDER [None]
  - LYMPHADENOPATHY [None]
  - PRODUCTIVE COUGH [None]
  - PYREXIA [None]
  - SPUTUM DISCOLOURED [None]
